FAERS Safety Report 4307673-2 (Version None)
Quarter: 2004Q1

REPORT INFORMATION
  Report Type: 
  Country: None (occurrence: None)
  Receive Date: 20040225
  Receipt Date: 20030925
  Transmission Date: 20041129
  Serious: Yes (Hospitalization, Disabling)
  Sender: FDA-Public Use
  Company Number: WAES 0309USA02762

PATIENT
  Age: 57 Year
  Sex: Female

DRUGS (4)
  1. ZOCOR [Suspect]
     Indication: BLOOD CHOLESTEROL INCREASED
     Dosage: 20 MG/DAILY/PO
     Route: 048
     Dates: start: 20030725
  2. EFFEXOR [Suspect]
     Indication: ANXIETY DISORDER
     Dates: start: 19970901
  3. PREVEN (EMERGENCY CONTRACEPTIVE KIT) [Concomitant]
  4. ESTROGENIC SUBSTANCE [Concomitant]

REACTIONS (1)
  - ANXIETY [None]
